FAERS Safety Report 5000661-2 (Version None)
Quarter: 2006Q2

REPORT INFORMATION
  Report Type: 
  Country: None (occurrence: None)
  Receive Date: 20060501
  Receipt Date: 20060419
  Transmission Date: 20061013
  Serious: Yes (Hospitalization, Other)
  Sender: FDA-Public Use
  Company Number: 2006053820

PATIENT
  Age: 78 Year
  Sex: Female
  Weight: 66.2252 kg

DRUGS (4)
  1. NORVASC [Suspect]
     Indication: HYPERTENSION
     Dosage: ORAL
     Route: 048
     Dates: start: 20050801
  2. FOLIC ACID [Concomitant]
  3. NSPECIFIED MEDICATION TO DECREASE BLOOD SUGAR (ANTI-DIABETICS) [Concomitant]
  4. BETAXOLOL [Concomitant]

REACTIONS (5)
  - FALL [None]
  - FEAR [None]
  - HALLUCINATION, VISUAL [None]
  - INSOMNIA [None]
  - TRANSIENT ISCHAEMIC ATTACK [None]
